FAERS Safety Report 12549202 (Version 2)
Quarter: 2016Q4

REPORT INFORMATION
  Report Type: Spontaneous
  Country: US (occurrence: US)
  Receive Date: 20160712
  Receipt Date: 20161017
  Transmission Date: 20170207
  Serious: Yes (Hospitalization, Other)
  Sender: FDA-Public Use
  Company Number: US-JAZZ-2016-US-012655

PATIENT
  Age: 42 Year
  Sex: Male

DRUGS (6)
  1. EFFEXOR [Concomitant]
     Active Substance: VENLAFAXINE HYDROCHLORIDE
     Indication: PRODUCT USED FOR UNKNOWN INDICATION
     Dosage: 150 MG, QD
     Route: 048
  2. XYREM [Suspect]
     Active Substance: SODIUM OXYBATE
     Indication: PRODUCT USED FOR UNKNOWN INDICATION
     Route: 048
  3. PROVENTIL HFA                      /00139501/ [Concomitant]
     Indication: PRODUCT USED FOR UNKNOWN INDICATION
     Dosage: 2 PUFF(S) 3 TIMES A DAY PRN INHALATION
  4. PAXIL [Concomitant]
     Active Substance: PAROXETINE HYDROCHLORIDE
     Indication: PRODUCT USED FOR UNKNOWN INDICATION
     Dosage: 10 MG, QD
     Route: 048
  5. TRAZODONE [Concomitant]
     Active Substance: TRAZODONE HYDROCHLORIDE
     Indication: PRODUCT USED FOR UNKNOWN INDICATION
     Dosage: TABS HS 3 TIMES A DAY
     Route: 048
  6. GABAPENTIN. [Concomitant]
     Active Substance: GABAPENTIN
     Indication: PRODUCT USED FOR UNKNOWN INDICATION
     Dosage: 800 MG, UNK

REACTIONS (38)
  - Electrolyte imbalance [Recovered/Resolved]
  - Hypertension [Recovered/Resolved]
  - Intentional overdose [Unknown]
  - Drug screen positive [Unknown]
  - Transaminases increased [Unknown]
  - Confusional state [Recovered/Resolved]
  - Rhabdomyolysis [Recovered/Resolved]
  - X-ray abnormal [Recovered/Resolved]
  - Swelling [Unknown]
  - Seizure [Unknown]
  - Condition aggravated [Unknown]
  - Hepatocellular injury [Unknown]
  - Hepatic steatosis [Unknown]
  - Urinary incontinence [Recovered/Resolved]
  - Oedema [Recovered/Resolved]
  - Anal incontinence [Recovered/Resolved]
  - Mental status changes [Unknown]
  - Major depression [Unknown]
  - Leukocytosis [Unknown]
  - Troponin increased [Unknown]
  - Electrocardiogram QT prolonged [Unknown]
  - Agitation [Recovered/Resolved]
  - Irritability [Recovered/Resolved]
  - Pain [Recovered/Resolved]
  - Coma [Recovered/Resolved]
  - Blood creatine phosphokinase increased [Recovered/Resolved]
  - Blood creatinine increased [Recovered/Resolved]
  - Tachycardia [Recovered/Resolved]
  - Jaundice [Unknown]
  - Suicide attempt [Unknown]
  - Acute kidney injury [Recovered/Resolved]
  - Contusion [Unknown]
  - Hypernatraemia [Unknown]
  - Serratia infection [Unknown]
  - Anxiety [Unknown]
  - Aggression [Unknown]
  - Ecchymosis [Recovered/Resolved]
  - Pneumonitis [Recovered/Resolved]
